FAERS Safety Report 25512731 (Version 1)
Quarter: 2025Q3

REPORT INFORMATION
  Report Type: Spontaneous
  Country: US (occurrence: US)
  Receive Date: 20250703
  Receipt Date: 20250703
  Transmission Date: 20251020
  Serious: No
  Sender: RADIUS PHARM
  Company Number: US-RADIUS HEALTH INC.-2024US004092

PATIENT
  Sex: Female

DRUGS (1)
  1. TYMLOS [Suspect]
     Active Substance: ABALOPARATIDE
     Indication: Product used for unknown indication
     Dates: start: 20240503

REACTIONS (9)
  - Intentional product misuse [Unknown]
  - Dry mouth [Unknown]
  - Pain [Unknown]
  - Tongue dry [Unknown]
  - Fatigue [Unknown]
  - Pruritus [Unknown]
  - Abdominal discomfort [Unknown]
  - Dry eye [Unknown]
  - Injection site discolouration [Unknown]

NARRATIVE: CASE EVENT DATE: 20240503
